FAERS Safety Report 10498124 (Version 1)
Quarter: 2014Q4

REPORT INFORMATION
  Report Type: Spontaneous
  Country: US (occurrence: None)
  Receive Date: 20141003
  Receipt Date: 20141003
  Transmission Date: 20150528
  Serious: Yes (Hospitalization, Other)
  Sender: FDA-Public Use
  Company Number: None

PATIENT
  Age: 61 Year
  Sex: Male
  Weight: 121.8 kg

DRUGS (1)
  1. SULFADIAZINE. [Suspect]
     Active Substance: SULFADIAZINE
     Route: 048
     Dates: start: 20140124, end: 20140325

REACTIONS (2)
  - Toxicity to various agents [None]
  - Acute kidney injury [None]

NARRATIVE: CASE EVENT DATE: 20140325
